FAERS Safety Report 5082801-2 (Version None)
Quarter: 2006Q3

REPORT INFORMATION
  Report Type: 
  Country: None (occurrence: None)
  Receive Date: 20060816
  Receipt Date: 20060816
  Transmission Date: 20061208
  Serious: Yes (Life-Threatening, Other)
  Sender: FDA-Public Use
  Company Number: None

PATIENT
  Age: 50 Year
  Sex: Female
  Weight: 76.5 kg

DRUGS (11)
  1. HYDROXYZINE [Suspect]
     Indication: PRURITUS
     Dosage: 50MG    ONCE      IV BOLUS
     Route: 040
     Dates: start: 20051109, end: 20051109
  2. ENOXAPARIN SODIUM [Concomitant]
  3. ACETAZOLAMIDE [Concomitant]
  4. ESOMEPRAZOLE MAGNESIUM [Concomitant]
  5. SPIRONOLACTONE [Concomitant]
  6. TORSEMIDE [Concomitant]
  7. LOPERAMIDE [Concomitant]
  8. COMBIVENT [Concomitant]
  9. MULTI-VITAMIN [Concomitant]
  10. OYSTERSHELL CALCIUM + D [Concomitant]
  11. TRAZODONE HCL [Concomitant]

REACTIONS (1)
  - HAEMOLYSIS [None]
